FAERS Safety Report 18173257 (Version 1)
Quarter: 2020Q3

REPORT INFORMATION
  Report Type: Spontaneous
  Country: US (occurrence: US)
  Receive Date: 20200819
  Receipt Date: 20200819
  Transmission Date: 20201103
  Serious: Yes (Other)
  Sender: FDA-Public Use
  Company Number: US-GILEAD-2020-0490930

PATIENT
  Age: 28 Year
  Sex: Female
  Weight: 58.2 kg

DRUGS (1)
  1. YESCARTA [Suspect]
     Active Substance: AXICABTAGENE CILOLEUCEL
     Indication: DIFFUSE LARGE B-CELL LYMPHOMA
     Dosage: 1 DOSAGE FORM, ONCE
     Route: 042
     Dates: start: 20200417, end: 20200417

REACTIONS (16)
  - Tremor [Recovering/Resolving]
  - Somnolence [Unknown]
  - Diarrhoea [Unknown]
  - Hypofibrinogenaemia [Recovering/Resolving]
  - Depressed level of consciousness [Recovering/Resolving]
  - Hypoalbuminaemia [Recovering/Resolving]
  - Seizure [Recovered/Resolved]
  - Headache [Unknown]
  - Confusional state [Recovering/Resolving]
  - Memory impairment [Unknown]
  - Neuropathy peripheral [Not Recovered/Not Resolved]
  - Encephalopathy [Unknown]
  - Agitation [Recovering/Resolving]
  - Aphasia [Recovering/Resolving]
  - Cytokine release syndrome [Recovering/Resolving]
  - Incontinence [Not Recovered/Not Resolved]

NARRATIVE: CASE EVENT DATE: 20200418
